FAERS Safety Report 16968965 (Version 1)
Quarter: 2019Q4

REPORT INFORMATION
  Report Type: Report from Study
  Country: ES (occurrence: ES)
  Receive Date: 20191029
  Receipt Date: 20191029
  Transmission Date: 20200122
  Serious: Yes (Hospitalization)
  Sender: FDA-Public Use
  Company Number: ES-TEVA-2019-ES-1128344

PATIENT
  Age: 29 Year
  Sex: Male

DRUGS (3)
  1. IBUPROFENO (1769A) [Suspect]
     Active Substance: IBUPROFEN
     Indication: TOOTHACHE
     Dosage: 600 MG PER DAY
     Route: 048
     Dates: start: 20180322, end: 20180322
  2. FOSTER 100/6 MICROGRAMOS/PULSACION SOLUCION PARA INHALACION EN ENVASE [Concomitant]
     Indication: ASTHMA
     Route: 055
     Dates: start: 20170914, end: 20180322
  3. SALBUTAMOL (2297A) [Concomitant]
     Active Substance: ALBUTEROL
     Indication: ASTHMA
     Route: 055
     Dates: start: 20170804

REACTIONS (1)
  - Asthmatic crisis [Recovered/Resolved]

NARRATIVE: CASE EVENT DATE: 20180322
